FAERS Safety Report 25441566 (Version 3)
Quarter: 2025Q3

REPORT INFORMATION
  Report Type: Spontaneous
  Country: AR (occurrence: AR)
  Receive Date: 20250616
  Receipt Date: 20250710
  Transmission Date: 20251020
  Serious: Yes (Other)
  Sender: AMGEN
  Company Number: AR-AMGEN-ARGSP2025114163

PATIENT
  Sex: Female

DRUGS (2)
  1. BLINCYTO [Suspect]
     Active Substance: BLINATUMOMAB
     Indication: B precursor type acute leukaemia
     Dosage: 28 MICROGRAM, QD
     Route: 065
  2. BLINCYTO [Suspect]
     Active Substance: BLINATUMOMAB
     Route: 065
     Dates: start: 2025

REACTIONS (8)
  - Petit mal epilepsy [Unknown]
  - Respiratory disorder [Recovering/Resolving]
  - Urinary tract disorder [Recovering/Resolving]
  - Neurotoxicity [Unknown]
  - Septic shock [Recovering/Resolving]
  - Immunodeficiency [Unknown]
  - Tremor [Unknown]
  - Infection [Unknown]

NARRATIVE: CASE EVENT DATE: 20250623
